FAERS Safety Report 18243869 (Version 1)
Quarter: 2020Q3

REPORT INFORMATION
  Report Type: Spontaneous
  Country: US (occurrence: US)
  Receive Date: 20200908
  Receipt Date: 20200908
  Transmission Date: 20201103
  Serious: Yes (Other)
  Sender: FDA-Public Use
  Company Number: NVSC2020US240480

PATIENT
  Sex: Female

DRUGS (3)
  1. INFLUENZA VACCINE [Suspect]
     Active Substance: INFLUENZA VIRUS VACCINE
     Indication: PRODUCT USED FOR UNKNOWN INDICATION
     Dosage: UNK
     Route: 065
  2. HUMIRA [Suspect]
     Active Substance: ADALIMUMAB
     Indication: PRODUCT USED FOR UNKNOWN INDICATION
     Dosage: UNK UNK, UNKNOWN
     Route: 058
  3. SOLARAZE [Suspect]
     Active Substance: DICLOFENAC SODIUM
     Indication: PRODUCT USED FOR UNKNOWN INDICATION
     Dosage: UNK
     Route: 065
     Dates: start: 2017, end: 202003

REACTIONS (14)
  - Gout [Unknown]
  - Lymphadenopathy [Unknown]
  - Endolymphatic hydrops [Unknown]
  - Skin disorder [Unknown]
  - Labyrinthitis [Unknown]
  - Blood cholesterol decreased [Unknown]
  - Fatigue [Unknown]
  - Balance disorder [Unknown]
  - Drug tolerance [Unknown]
  - Thyroid hormones decreased [Unknown]
  - Tendonitis [Unknown]
  - Diplopia [Unknown]
  - Inflammation [Unknown]
  - Stress [Unknown]

NARRATIVE: CASE EVENT DATE: 2019
